FAERS Safety Report 7542299-9 (Version None)
Quarter: 2011Q2

REPORT INFORMATION
  Report Type: 
  Country: None (occurrence: None)
  Receive Date: 20110524
  Receipt Date: 20110205
  Transmission Date: 20111010
  Serious: No
  Sender: FDA-Public Use
  Company Number: 026940

PATIENT
  Sex: Female
  Weight: 45 kg

DRUGS (2)
  1. CIMZIA [Suspect]
     Indication: CROHN'S DISEASE
     Dosage: (2 SHOTS SUBCUTANEOUS), (200 MG 1X/MONTH SUBCUTANEOUS)
     Route: 058
     Dates: start: 20101001
  2. CIMZIA [Suspect]
     Indication: CROHN'S DISEASE
     Dosage: (2 SHOTS SUBCUTANEOUS), (200 MG 1X/MONTH SUBCUTANEOUS)
     Route: 058
     Dates: start: 20091001

REACTIONS (4)
  - VOMITING [None]
  - CYSTITIS [None]
  - NEPHROLITHIASIS [None]
  - BLOOD POTASSIUM DECREASED [None]
